FAERS Safety Report 14184249 (Version 1)
Quarter: 2017Q4

REPORT INFORMATION
  Report Type: Spontaneous
  Country: US (occurrence: US)
  Receive Date: 20171113
  Receipt Date: 20171113
  Transmission Date: 20180321
  Serious: No
  Sender: FDA-Public Use
  Company Number: US-ALLERGAN-1704895US

PATIENT
  Age: 77 Year
  Sex: Male
  Weight: 102.4 kg

DRUGS (2)
  1. OLMETEC HCTZ [Concomitant]
     Indication: HYPERTENSION
     Dosage: 25/40MG, QD
     Route: 048
  2. RAPAFLO [Suspect]
     Active Substance: SILODOSIN
     Indication: PROSTATOMEGALY
     Dosage: ONCE DAILY AT NIGHT
     Route: 048
     Dates: start: 201612

REACTIONS (3)
  - Fatigue [Unknown]
  - Balance disorder [Not Recovered/Not Resolved]
  - Dizziness [Unknown]

NARRATIVE: CASE EVENT DATE: 201612
